FAERS Safety Report 13549692 (Version 1)
Quarter: 2017Q2

REPORT INFORMATION
  Report Type: Spontaneous
  Country: KW (occurrence: KW)
  Receive Date: 20170516
  Receipt Date: 20170516
  Transmission Date: 20170830
  Serious: Yes (Hospitalization, Other)
  Sender: FDA-Public Use
  Company Number: KW-ASTELLAS-2017US018208

PATIENT
  Age: 31 Year
  Sex: Female

DRUGS (3)
  1. PROGRAF [Suspect]
     Active Substance: TACROLIMUS\TACROLIMUS ANHYDROUS
     Indication: RENAL TRANSPLANT
     Dosage: UNK UNK, UNKNOWN FREQ.
     Route: 065
  2. INSULATARD                         /00646002/ [Concomitant]
     Active Substance: INSULIN HUMAN
     Indication: DIABETES MELLITUS
     Dosage: UNK UNK, TWICE DAILY
     Route: 065
  3. NOVORAPID [Concomitant]
     Active Substance: INSULIN ASPART
     Indication: DIABETES MELLITUS
     Dosage: UNK UNK, UNKNOWN FREQ.
     Route: 065

REACTIONS (10)
  - Blood pressure increased [Unknown]
  - Infertility female [Unknown]
  - Intra-abdominal pressure increased [Unknown]
  - Complications of transplanted kidney [Unknown]
  - Premature delivery [Unknown]
  - Normochromic normocytic anaemia [Unknown]
  - Progesterone decreased [Unknown]
  - Anovulatory cycle [Unknown]
  - Urinary tract infection [Unknown]
  - Exposure during pregnancy [Unknown]
